FAERS Safety Report 9023686 (Version 2)
Quarter: 2013Q1

REPORT INFORMATION
  Report Type: Spontaneous
  Country: US (occurrence: US)
  Receive Date: 20130121
  Receipt Date: 20130222
  Transmission Date: 20140127
  Serious: Yes (Other)
  Sender: FDA-Public Use
  Company Number: US-ASTELLAS-2013US000516

PATIENT
  Sex: Female

DRUGS (3)
  1. TARCEVA [Suspect]
     Indication: NON-SMALL CELL LUNG CANCER
     Dosage: 150 MG, UID/QD
     Route: 048
     Dates: start: 2010
  2. TARCEVA [Suspect]
     Dosage: 100 MG, UID/QD
     Route: 048
  3. TARCEVA [Suspect]
     Dosage: 50 MG, UID/QD
     Route: 048

REACTIONS (5)
  - Adverse drug reaction [Unknown]
  - Metastases to bone [Unknown]
  - Vulvovaginal burning sensation [Unknown]
  - Ocular hyperaemia [Unknown]
  - Eye irritation [Unknown]
